FAERS Safety Report 6345428-8 (Version None)
Quarter: 2009Q3

REPORT INFORMATION
  Report Type: 
  Country: None (occurrence: None)
  Receive Date: 20090909
  Receipt Date: 20090901
  Transmission Date: 20100115
  Serious: Yes (Hospitalization)
  Sender: FDA-Public Use
  Company Number: JP-BAYER-200913163BYL

PATIENT
  Age: 55 Year
  Sex: Female
  Weight: 56 kg

DRUGS (19)
  1. NEXAVAR [Suspect]
     Indication: HEPATIC NEOPLASM MALIGNANT
     Dosage: UNIT DOSE: 200 MG
     Route: 048
     Dates: start: 20090714, end: 20090725
  2. NEXAVAR [Suspect]
     Dosage: UNIT DOSE: 200 MG
     Route: 048
     Dates: start: 20090725
  3. PARIET [Concomitant]
     Route: 048
  4. MAINTATE [Concomitant]
     Route: 048
  5. GASPORT [Concomitant]
     Route: 048
  6. PREDNISOLONE [Concomitant]
     Route: 048
  7. GASTER D [Concomitant]
     Route: 048
  8. CORINAEL L [Concomitant]
     Route: 048
  9. GLYCYRON [Concomitant]
     Route: 048
  10. PA [Concomitant]
     Route: 048
  11. JU-KAMA [Concomitant]
     Route: 048
  12. OZEX [Concomitant]
     Route: 048
  13. SAWATENE [Concomitant]
     Route: 048
  14. DERMOVATE [Concomitant]
     Route: 061
  15. LOPEMIN [Concomitant]
     Indication: DIARRHOEA
     Route: 048
  16. MYSLEE [Concomitant]
     Indication: INSOMNIA
     Route: 048
  17. LOXONIN [Concomitant]
     Indication: PAIN
     Route: 048
  18. ANTEBATE:OINTMENT [Concomitant]
     Route: 061
  19. UREPEARL [Concomitant]
     Route: 061

REACTIONS (3)
  - HAEMATEMESIS [None]
  - RASH [None]
  - VARICES OESOPHAGEAL [None]
